FAERS Safety Report 7223095-9 (Version None)
Quarter: 2011Q1

REPORT INFORMATION
  Report Type: 
  Country: None (occurrence: None)
  Receive Date: 20110112
  Receipt Date: 20100112
  Transmission Date: 20110831
  Serious: No
  Sender: FDA-Public Use
  Company Number: US-ALLERGAN-1000466US

PATIENT
  Sex: Female

DRUGS (1)
  1. RESTASIS [Suspect]
     Indication: PRODUCT USED FOR UNKNOWN INDICATION

REACTIONS (7)
  - LACRIMATION INCREASED [None]
  - OCULAR HYPERAEMIA [None]
  - MALAISE [None]
  - DRY EYE [None]
  - DIZZINESS [None]
  - EYE BURNS [None]
  - VISION BLURRED [None]
